FAERS Safety Report 5147220-9 (Version None)
Quarter: 2006Q4

REPORT INFORMATION
  Report Type: 
  Country: None (occurrence: None)
  Receive Date: 20061109
  Receipt Date: 20061031
  Transmission Date: 20070319
  Serious: Yes (Life-Threatening, Hospitalization, Other)
  Sender: FDA-Public Use
  Company Number: GB-ABBOTT-06P-167-0348922-00

PATIENT
  Age: 31 Year
  Sex: Female

DRUGS (7)
  1. IBUPROFEN [Suspect]
     Indication: ANALGESIC EFFECT
     Route: 048
     Dates: start: 20060802, end: 20060814
  2. PREDNISOLONE [Suspect]
     Indication: HEPATITIS
     Route: 048
     Dates: start: 20060612, end: 20060618
  3. FOLIC ACID [Concomitant]
     Indication: DRUG USE FOR UNKNOWN INDICATION
     Route: 048
     Dates: start: 20060608
  4. LACTULOSE [Concomitant]
     Indication: DRUG USE FOR UNKNOWN INDICATION
     Route: 048
     Dates: start: 20060605
  5. SPIRONOLACTONE [Concomitant]
     Indication: ASCITES
     Route: 048
     Dates: start: 20060620, end: 20060818
  6. THIAMINE [Concomitant]
     Indication: DRUG USE FOR UNKNOWN INDICATION
     Dates: start: 20060605, end: 20060818
  7. BENZODIAZEPINE [Concomitant]
     Indication: ALCOHOL WITHDRAWAL SYNDROME

REACTIONS (4)
  - DUODENAL ULCER [None]
  - ENCEPHALOPATHY [None]
  - HAEMATEMESIS [None]
  - MELAENA [None]
